FAERS Safety Report 15058247 (Version 1)
Quarter: 2018Q2

REPORT INFORMATION
  Report Type: Spontaneous
  Country: US (occurrence: US)
  Receive Date: 20180625
  Receipt Date: 20180625
  Transmission Date: 20180711
  Serious: No
  Sender: FDA-Public Use
  Company Number: US-PFIZER INC-2018255196

PATIENT
  Age: 48 Year
  Sex: Female
  Weight: 108.8 kg

DRUGS (1)
  1. XELJANZ [Suspect]
     Active Substance: TOFACITINIB CITRATE
     Indication: RHEUMATOID ARTHRITIS
     Dosage: 5 MG, TWICE DAILY (60/BTL)
     Route: 048
     Dates: start: 2016

REACTIONS (1)
  - Condition aggravated [Unknown]
